FAERS Safety Report 14679482 (Version 2)
Quarter: 2019Q4

REPORT INFORMATION
  Report Type: Report from Study
  Country: US (occurrence: US)
  Receive Date: 20180326
  Receipt Date: 20191203
  Transmission Date: 20200122
  Serious: No
  Sender: FDA-Public Use
  Company Number: PHEH2018US011519

PATIENT
  Age: 59 Year
  Sex: Female

DRUGS (2)
  1. COSENTYX [Suspect]
     Active Substance: SECUKINUMAB
     Indication: PSORIASIS
     Dosage: 300 MG, QW FOR 5 WEEKS THEN QMO
     Route: 058
     Dates: start: 201710
  2. COSENTYX [Suspect]
     Active Substance: SECUKINUMAB
     Dosage: 300 MG, QMO
     Route: 058
     Dates: end: 201801

REACTIONS (4)
  - Arthralgia [Unknown]
  - Psoriasis [Unknown]
  - Burning sensation [Unknown]
  - Pruritus [Unknown]

NARRATIVE: CASE EVENT DATE: 20180227
